FAERS Safety Report 15028393 (Version 1)
Quarter: 2018Q2

REPORT INFORMATION
  Report Type: Report from Study
  Country: IT (occurrence: IT)
  Receive Date: 20180619
  Receipt Date: 20180619
  Transmission Date: 20180711
  Serious: Yes (Other)
  Sender: FDA-Public Use
  Company Number: IT-TEVA-2018-IT-909396

PATIENT
  Age: 30 Year
  Sex: Female

DRUGS (4)
  1. KEFORAL [Suspect]
     Active Substance: CEPHALEXIN
     Dosage: 20 MG/ML IN 0.9% SODIUM CHLORIDE.
     Route: 023
  2. KEFORAL [Suspect]
     Active Substance: CEPHALEXIN
     Dosage: 2 MG/ML IN 0.9% SODIUM CHLORIDE.
     Route: 023
  3. AMOXICILLIN. [Suspect]
     Active Substance: AMOXICILLIN
     Indication: PRODUCT USED FOR UNKNOWN INDICATION
     Route: 065
  4. PANACEF [Suspect]
     Active Substance: CEFACLOR
     Dosage: 2 MG/ML IN 0.9% SODIUM CHLORIDE.
     Route: 023

REACTIONS (3)
  - Therapeutic product cross-reactivity [Unknown]
  - Type IV hypersensitivity reaction [Unknown]
  - Toxic epidermal necrolysis [Unknown]
